FAERS Safety Report 8190692-6 (Version None)
Quarter: 2012Q1

REPORT INFORMATION
  Report Type: 
  Country: None (occurrence: None)
  Receive Date: 20120221
  Receipt Date: 20120109
  Transmission Date: 20120608
  Serious: Yes (Death)
  Sender: FDA-Public Use
  Company Number: 1000026448

PATIENT
  Age: 54 Year
  Sex: Male

DRUGS (3)
  1. VIIBRYD [Suspect]
     Indication: MAJOR DEPRESSION
     Dosage: 10 MG (10 MG,1 IN 1 D)
     Dates: start: 20111206, end: 20111216
  2. VALIUM [Concomitant]
  3. BUSPAR (BUSPIRONE HYDROCHLORIDE) (BUSPIRONE HYDROCHLORIDE) [Concomitant]

REACTIONS (1)
  - DEATH [None]
